FAERS Safety Report 17094024 (Version 1)
Quarter: 2019Q4

REPORT INFORMATION
  Report Type: Spontaneous
  Country: US (occurrence: US)
  Receive Date: 20191129
  Receipt Date: 20191129
  Transmission Date: 20200122
  Serious: Yes (Hospitalization)
  Sender: FDA-Public Use
  Company Number: US-B.I. PHARMACEUTICALS,INC./RIDGEFIELD-2019-BI-116650

PATIENT
  Age: 67 Year
  Sex: Male
  Weight: 100.7 kg

DRUGS (16)
  1. LOTENSINE [Concomitant]
     Active Substance: CAPTOPRIL
     Indication: PRODUCT USED FOR UNKNOWN INDICATION
     Dosage: TAKE 1 TABLET (20MG) BY ORAL ROUTE EVERYDAY
     Route: 048
  2. PROAIR HFA [Concomitant]
     Active Substance: ALBUTEROL SULFATE
     Indication: PRODUCT USED FOR UNKNOWN INDICATION
     Dosage: 90MCG/ACTUATION AEROSOL INHALER?INHALE 2 PUFF BY INHALATION EVERY 4-6 HRS AS NEEDED
     Route: 055
  3. PRADAXA [Suspect]
     Active Substance: DABIGATRAN ETEXILATE MESYLATE
     Indication: ATRIAL FIBRILLATION
     Dosage: TAKE 1 CAPSULE (150 MG) BY ORAL ROUTE 2 TIMES EVERYDAY
     Route: 048
     Dates: start: 20120301, end: 20170101
  4. IMDUR [Concomitant]
     Active Substance: ISOSORBIDE MONONITRATE
     Indication: PRODUCT USED FOR UNKNOWN INDICATION
     Dosage: TAKE 1.5 MG TABLE (90 MG) BY ORAL ROUTE EVERYDAY IN THE MORNING
     Route: 048
  5. COREG [Concomitant]
     Active Substance: CARVEDILOL
     Indication: PRODUCT USED FOR UNKNOWN INDICATION
     Dosage: TAKE 1 TABLET (25MG) BY ORAL ROUTE 2 TIMES EVERY DAY WITH FOOD
     Route: 048
     Dates: start: 19980101
  6. PRILOSEC [Concomitant]
     Active Substance: OMEPRAZOLE MAGNESIUM
     Dosage: TAKE 1 CAPSULE BY ORAL ROUTE 2 TIMES EVERY DAY BEFORE A MEAL
     Route: 048
  7. PRILOSEC [Concomitant]
     Active Substance: OMEPRAZOLE MAGNESIUM
     Indication: PRODUCT USED FOR UNKNOWN INDICATION
     Route: 065
     Dates: start: 20090101, end: 20150502
  8. NEURONTIN [Concomitant]
     Active Substance: GABAPENTIN
     Indication: PRODUCT USED FOR UNKNOWN INDICATION
     Dosage: TAKE ONE TAB (600MG) BY ORAL ROUTE 2 TIMES EVERY DAY
     Route: 048
  9. ZOLOFT [Concomitant]
     Active Substance: SERTRALINE HYDROCHLORIDE
     Indication: PRODUCT USED FOR UNKNOWN INDICATION
     Dosage: 1 TABLET (100 MG) BY ORAL ROUTE EVERY DAY
     Route: 048
     Dates: start: 20120101
  10. HUMULIN 70/30 [Concomitant]
     Active Substance: INSULIN HUMAN
     Indication: PRODUCT USED FOR UNKNOWN INDICATION
     Dosage: 70/30 100 UNIT/ML (70-30) SUSP?55 UNITS BY SUBCUTANEOUS ROUTE EVERY MORNING AND 65 UNITS SQ EVENING
     Route: 058
  11. MOBIC [Concomitant]
     Active Substance: MELOXICAM
     Indication: PRODUCT USED FOR UNKNOWN INDICATION
     Dosage: TAKE ONE TAB (15MG) BY ORAL ROUTE EVERY DAY
     Route: 048
  12. CRESTOR [Concomitant]
     Active Substance: ROSUVASTATIN CALCIUM
     Indication: PRODUCT USED FOR UNKNOWN INDICATION
     Dosage: TAKE ONE TABLET 20MG BY ORAL ROUTE EVERYDAY
     Route: 048
  13. FLEXERIL [CEFIXIME] [Concomitant]
     Active Substance: CEFIXIME
     Indication: PRODUCT USED FOR UNKNOWN INDICATION
     Dosage: TAKE 1 TABLET (5MG) BY ORAL ROUTE 2 TIMES EVERY
     Route: 048
  14. HUMULIN 70/30 [Concomitant]
     Active Substance: INSULIN HUMAN
     Dosage: 70/30 100 UNIT/ML (70-30) SUSP?55 UNITS BY SUBCUTANEOUS ROUTE EVERY MORNING AND 65 UNITS SQ EVENING
     Route: 058
  15. NITROGLYCERIN. [Concomitant]
     Active Substance: NITROGLYCERIN
     Indication: CHEST PAIN
     Dosage: TAKE 1 TAB (0.4 MG) SUBLINGUAL ROUTE EVERY 5 MINS CHEST PAIN GO TO ER IF SECOND DOSE NEEDED
     Route: 060
  16. WELLBUTRIN [Concomitant]
     Active Substance: BUPROPION HYDROCHLORIDE
     Indication: PRODUCT USED FOR UNKNOWN INDICATION
     Dosage: XL 150MG 24 HOUR, EXTENDED RELEASE?TAKE 1 TABLET (150 MG) BY ORAL ROUTE EVERY DAY
     Route: 048

REACTIONS (1)
  - Lower gastrointestinal haemorrhage [Recovered/Resolved]

NARRATIVE: CASE EVENT DATE: 20170115
